FAERS Safety Report 17610366 (Version 8)
Quarter: 2021Q1

REPORT INFORMATION
  Report Type: Spontaneous
  Country: US (occurrence: US)
  Receive Date: 20200401
  Receipt Date: 20210318
  Transmission Date: 20210419
  Serious: Yes (Other)
  Sender: FDA-Public Use
  Company Number: US-PFIZER INC-2020131686

PATIENT
  Age: 30 Year
  Sex: Male

DRUGS (2)
  1. XELJANZ [Suspect]
     Active Substance: TOFACITINIB CITRATE
     Indication: COLITIS ULCERATIVE
     Dosage: 20 MG, DAILY
     Route: 048
     Dates: start: 20200115
  2. XELJANZ [Suspect]
     Active Substance: TOFACITINIB CITRATE
     Dosage: 10 MG, 2X/DAY
     Route: 048
     Dates: start: 20200118

REACTIONS (9)
  - Therapeutic product effect decreased [Unknown]
  - Product dose omission issue [Unknown]
  - Pyrexia [Unknown]
  - SARS-CoV-2 test positive [Recovered/Resolved]
  - Headache [Unknown]
  - Intentional dose omission [Unknown]
  - Cough [Unknown]
  - Acne [Unknown]
  - Rectal haemorrhage [Unknown]

NARRATIVE: CASE EVENT DATE: 2020
